FAERS Safety Report 13725882 (Version 3)
Quarter: 2017Q3

REPORT INFORMATION
  Report Type: Spontaneous
  Country: EG (occurrence: EG)
  Receive Date: 20170707
  Receipt Date: 20170808
  Transmission Date: 20171127
  Serious: Yes (Death, Hospitalization)
  Sender: FDA-Public Use
  Company Number: EG-JNJFOC-20170701729

PATIENT
  Age: 65 Year
  Sex: Male

DRUGS (5)
  1. BRUFEN [Concomitant]
     Active Substance: IBUPROFEN
     Route: 065
  2. IMBRUVICA [Suspect]
     Active Substance: IBRUTINIB
     Indication: CHRONIC LYMPHOCYTIC LEUKAEMIA REFRACTORY
     Route: 048
     Dates: start: 201704
  3. CONTROLOC [Concomitant]
     Active Substance: PANTOPRAZOLE SODIUM
     Route: 065
  4. RITUXIMAB. [Concomitant]
     Active Substance: RITUXIMAB
     Route: 065
  5. TRAMADOL. [Concomitant]
     Active Substance: TRAMADOL
     Route: 065

REACTIONS (4)
  - Off label use [Unknown]
  - Disease progression [Fatal]
  - Tumour lysis syndrome [Fatal]
  - Incorrect dose administered [Unknown]
